FAERS Safety Report 16131412 (Version 1)
Quarter: 2019Q1

REPORT INFORMATION
  Report Type: Report from Study
  Country: US (occurrence: US)
  Receive Date: 20190328
  Receipt Date: 20190328
  Transmission Date: 20190418
  Serious: Yes (Death, Hospitalization, Other)
  Sender: FDA-Public Use
  Company Number: US-CELGENEUS-163-00000-14092160

PATIENT
  Age: 74 Year
  Sex: Male
  Weight: 83.99 kg

DRUGS (3)
  1. IDARUBICIN [Suspect]
     Active Substance: IDARUBICIN
     Indication: ACUTE MYELOID LEUKAEMIA
     Dosage: 12 MILLIGRAM
     Route: 041
     Dates: start: 20140809, end: 20140811
  2. VIDAZA [Suspect]
     Active Substance: AZACITIDINE
     Indication: ACUTE MYELOID LEUKAEMIA
     Dosage: 150 MILLIGRAM
     Route: 041
     Dates: start: 20140317, end: 20140808
  3. CYTARABINE. [Suspect]
     Active Substance: CYTARABINE
     Indication: ACUTE MYELOID LEUKAEMIA
     Dosage: 150 MILLIGRAM/SQ. METER
     Route: 041
     Dates: start: 20140809, end: 20140816

REACTIONS (4)
  - Cerebral infarction [Fatal]
  - Acute myeloid leukaemia [Recovered/Resolved]
  - Febrile neutropenia [Not Recovered/Not Resolved]
  - Mental status changes [Recovered/Resolved]

NARRATIVE: CASE EVENT DATE: 20140808
